FAERS Safety Report 9012658 (Version 1)
Quarter: 2013Q1

REPORT INFORMATION
  Report Type: Spontaneous
  Country: IT (occurrence: IT)
  Receive Date: 20130114
  Receipt Date: 20130114
  Transmission Date: 20140127
  Serious: Yes (Other)
  Sender: FDA-Public Use
  Company Number: IT-BAYER-2013-004283

PATIENT
  Age: 69 Year
  Sex: Male

DRUGS (8)
  1. AVALOX [Suspect]
     Indication: COUGH
     Dosage: 400 MG, QD
     Route: 048
     Dates: start: 20120216, end: 20120216
  2. PARACETAMOL [Concomitant]
     Dosage: UNK
  3. COTAREG [Concomitant]
     Dosage: UNK
  4. HEDERIX PLAN [Concomitant]
     Dosage: UNK
  5. MINITRAN [Concomitant]
     Dosage: UNK
  6. SYMBICORT [Concomitant]
     Dosage: DAILY DOSE 164.5 ?G
     Route: 055
  7. BRUFEN [Concomitant]
     Dosage: UNK
  8. CORLENTOR [Concomitant]

REACTIONS (4)
  - Rash [Recovering/Resolving]
  - Feeling hot [Recovering/Resolving]
  - Pruritus [Recovering/Resolving]
  - Urticaria [Recovering/Resolving]
